FAERS Safety Report 25609221 (Version 1)
Quarter: 2025Q3

REPORT INFORMATION
  Report Type: Spontaneous
  Country: US (occurrence: US)
  Receive Date: 20250727
  Receipt Date: 20250727
  Transmission Date: 20251021
  Serious: No
  Sender: DR REDDYS
  Company Number: US-DRL-USA-USA/2025/06/009396

PATIENT
  Age: 66 Year
  Sex: Female

DRUGS (1)
  1. CLONIDINE TRANSDERMAL SYSTEM [Suspect]
     Active Substance: CLONIDINE
     Indication: Hypertension
     Route: 062
     Dates: start: 20250409

REACTIONS (2)
  - Product adhesion issue [Unknown]
  - Stress [Unknown]

NARRATIVE: CASE EVENT DATE: 20250604
